FAERS Safety Report 22181222 (Version 1)
Quarter: 2023Q2

REPORT INFORMATION
  Report Type: Spontaneous
  Country: US (occurrence: None)
  Receive Date: 20230405
  Receipt Date: 20230405
  Transmission Date: 20230722
  Serious: No
  Sender: FDA-Public Use
  Company Number: None

PATIENT
  Age: 78 Year
  Sex: Male
  Weight: 82.1 kg

DRUGS (18)
  1. LENALIDOMIDE [Suspect]
     Active Substance: LENALIDOMIDE
     Indication: Chronic lymphocytic leukaemia
     Dosage: FREQUENCY : DAILY;?
     Route: 048
  2. ACYCLOVIR [Concomitant]
  3. ALLOPURINOL [Concomitant]
  4. CALCIPOTRIENE [Concomitant]
  5. EVUSHELD [Concomitant]
  6. FLUCONAZOLE [Concomitant]
  7. FLUOROURACIL [Concomitant]
  8. LEVOFLOXACIN [Concomitant]
  9. METOPROLOL [Concomitant]
  10. NAROPIN [Concomitant]
  11. NEBUPENT [Concomitant]
  12. NEUPOGEN [Concomitant]
     Active Substance: FILGRASTIM
  13. NIVESTYM [Concomitant]
  14. PAXLOVID [Concomitant]
  15. TRIAMCINOLONE [Concomitant]
     Active Substance: TRIAMCINOLONE
  16. VALACYCLOVIR [Concomitant]
  17. XARELTO [Concomitant]
  18. ZARXIO [Concomitant]
     Active Substance: FILGRASTIM-SNDZ

REACTIONS (1)
  - COVID-19 [None]
